FAERS Safety Report 7109571-8 (Version None)
Quarter: 2010Q4

REPORT INFORMATION
  Report Type: 
  Country: None (occurrence: None)
  Receive Date: 20101118
  Receipt Date: 20101109
  Transmission Date: 20110411
  Serious: No
  Sender: FDA-Public Use
  Company Number: US-BIOGENIDEC-2010BI039520

PATIENT
  Age: 31 Year
  Sex: Female

DRUGS (3)
  1. AVONEX [Suspect]
     Indication: MULTIPLE SCLEROSIS
     Route: 030
     Dates: start: 20010101, end: 20020703
  2. AVONEX [Suspect]
     Route: 030
     Dates: start: 20060516, end: 20080716
  3. AVONEX [Suspect]
     Route: 030
     Dates: start: 20101028

REACTIONS (2)
  - ORAL PAIN [None]
  - PANIC ATTACK [None]
